FAERS Safety Report 6318712-1 (Version None)
Quarter: 2009Q3

REPORT INFORMATION
  Report Type: 
  Country: None (occurrence: None)
  Receive Date: 20090819
  Receipt Date: 20090806
  Transmission Date: 20100115
  Serious: Yes (Hospitalization, Disabling, Other)
  Sender: FDA-Public Use
  Company Number: 2005-135841-NL

PATIENT
  Age: 35 Year
  Sex: Female

DRUGS (2)
  1. HUMEGON [Suspect]
     Indication: ASSISTED FERTILISATION
  2. PREGNYL [Suspect]
     Indication: ASSISTED FERTILISATION

REACTIONS (9)
  - ABORTION SPONTANEOUS [None]
  - FIBROMYALGIA [None]
  - INCORRECT DOSE ADMINISTERED [None]
  - MOBILITY DECREASED [None]
  - OSTEOARTHRITIS [None]
  - PELVIC PAIN [None]
  - PREGNANCY [None]
  - SPINAL FRACTURE [None]
  - SPINAL OSTEOARTHRITIS [None]
